FAERS Safety Report 25257188 (Version 2)
Quarter: 2025Q2

REPORT INFORMATION
  Report Type: Report from Study
  Country: US (occurrence: US)
  Receive Date: 20250430
  Receipt Date: 20250625
  Transmission Date: 20250717
  Serious: Yes (Hospitalization, Other)
  Sender: VERTEX
  Company Number: US-VERTEX PHARMACEUTICALS-2020-019375

PATIENT
  Sex: Female
  Weight: 67 kg

DRUGS (27)
  1. TRIKAFTA [Suspect]
     Active Substance: ELEXACAFTOR\IVACAFTOR\TEZACAFTOR
     Indication: Cystic fibrosis
     Dosage: 2 TABS IN AM AND 1 TAB IN PM
     Route: 048
     Dates: start: 20200914, end: 2020
  2. TRIKAFTA [Suspect]
     Active Substance: ELEXACAFTOR\IVACAFTOR\TEZACAFTOR
     Dosage: 1 ORANGE TABLET IN MORNING AND HALF A BLUE AT NIGHT
     Route: 048
     Dates: start: 20201101, end: 2020
  3. TRIKAFTA [Suspect]
     Active Substance: ELEXACAFTOR\IVACAFTOR\TEZACAFTOR
     Route: 048
     Dates: start: 202012
  4. TRIKAFTA [Suspect]
     Active Substance: ELEXACAFTOR\IVACAFTOR\TEZACAFTOR
     Dosage: SWITCHED AM/PM DOSE
     Route: 048
  5. TRIKAFTA [Suspect]
     Active Substance: ELEXACAFTOR\IVACAFTOR\TEZACAFTOR
     Route: 048
  6. TRIKAFTA [Suspect]
     Active Substance: ELEXACAFTOR\IVACAFTOR\TEZACAFTOR
     Route: 048
  7. TRIKAFTA [Suspect]
     Active Substance: ELEXACAFTOR\IVACAFTOR\TEZACAFTOR
     Route: 048
  8. TRIKAFTA [Suspect]
     Active Substance: ELEXACAFTOR\IVACAFTOR\TEZACAFTOR
     Route: 048
     Dates: start: 20240628, end: 20250424
  9. AMITRIPTYLINE [Concomitant]
     Active Substance: AMITRIPTYLINE
  10. DEXTROAMPHETAMINE [Concomitant]
     Active Substance: DEXTROAMPHETAMINE
  11. ACETAMINOPHEN AND CODEINE [Concomitant]
     Active Substance: ACETAMINOPHEN\CODEINE PHOSPHATE
  12. AZITHROMYCIN [Concomitant]
     Active Substance: AZITHROMYCIN
  13. BUPROPION HYDROCHLORIDE [Concomitant]
     Active Substance: BUPROPION HYDROCHLORIDE
  14. CEPHALEXIN [Concomitant]
     Active Substance: CEPHALEXIN
  15. CIPROFLOXACIN [Concomitant]
     Active Substance: CIPROFLOXACIN
  16. DOXYCYCLINE HYCLATE [Concomitant]
     Active Substance: DOXYCYCLINE HYCLATE
  17. ESTRADIOL [Concomitant]
     Active Substance: ESTRADIOL
  18. FERROUS SULFATE [Concomitant]
     Active Substance: FERROUS SULFATE
  19. FLUCONAZOLE [Concomitant]
     Active Substance: FLUCONAZOLE
  20. LEVALBUTEROL [Concomitant]
     Active Substance: LEVALBUTEROL
  21. LIDO/PRILOCAINE [Concomitant]
  22. LEVOFLOXACIN [Concomitant]
     Active Substance: LEVOFLOXACIN
  23. MELOXICAM [Concomitant]
     Active Substance: MELOXICAM
  24. NYSTATIN [Concomitant]
     Active Substance: NYSTATIN
  25. PAXIL [Concomitant]
     Active Substance: PAROXETINE HYDROCHLORIDE
  26. METHYLPREDNISOLONE [Concomitant]
     Active Substance: METHYLPREDNISOLONE
  27. PREDNISONE [Concomitant]
     Active Substance: PREDNISONE

REACTIONS (10)
  - Insomnia [Recovered/Resolved]
  - Productive cough [Recovered/Resolved]
  - Headache [Not Recovered/Not Resolved]
  - Suicidal ideation [Recovered/Resolved]
  - Restlessness [Recovering/Resolving]
  - Anxiety [Recovered/Resolved]
  - Depression [Recovered/Resolved]
  - Respiratory tract congestion [Unknown]
  - Feeling abnormal [Unknown]
  - Pruritus [Unknown]

NARRATIVE: CASE EVENT DATE: 20200101
